FAERS Safety Report 4743428-2 (Version None)
Quarter: 2005Q3

REPORT INFORMATION
  Report Type: 
  Country: None (occurrence: None)
  Receive Date: 20050810
  Receipt Date: 20050810
  Transmission Date: 20060218
  Serious: Yes (Death, Life-Threatening, Hospitalization)
  Sender: FDA-Public Use
  Company Number: None

PATIENT
  Age: 44 Year
  Sex: Male
  Weight: 99 kg

DRUGS (13)
  1. CISPLATIN MG/M2 D1 AND D8 OF 21-DAY CYCLE [Suspect]
     Indication: SMALL INTESTINE CARCINOMA METASTATIC
     Dosage: 25 IV
     Route: 042
     Dates: start: 20050507, end: 20050706
  2. IRINOTECAN (MG/M2), D1 AND D8 OF 21-DAY CYCLE [Suspect]
     Indication: SMALL INTESTINE CARCINOMA METASTATIC
     Dosage: 65 IV
     Route: 042
     Dates: start: 20050607, end: 20050706
  3. CONTINUOUS INFUSIONAL 5-FU (MG/M2); D1-14 OF 21-DAY CYCLE [Suspect]
     Dosage: 260 IV
     Route: 042
     Dates: start: 20020608, end: 20050713
  4. ALTACE [Concomitant]
  5. COLACE [Concomitant]
  6. IBUPROFEN [Concomitant]
  7. KEFLEX [Concomitant]
  8. LOMOTIL [Concomitant]
  9. MIRACLE MOUTHWASH [Concomitant]
  10. M.V.I. [Concomitant]
  11. OXYCODONE [Concomitant]
  12. TYLENOL (CAPLET) [Concomitant]
  13. ZOFRAN [Concomitant]

REACTIONS (11)
  - CLOSTRIDIUM COLITIS [None]
  - CULTURE STOOL POSITIVE [None]
  - DEHYDRATION [None]
  - DIARRHOEA [None]
  - HYPERHIDROSIS [None]
  - HYPOTENSION [None]
  - NEUTROPENIA [None]
  - PALLOR [None]
  - TACHYCARDIA [None]
  - VOMITING [None]
  - WEIGHT DECREASED [None]
